FAERS Safety Report 9913842 (Version 4)
Quarter: 2014Q2

REPORT INFORMATION
  Report Type: Spontaneous
  Country: JP (occurrence: JP)
  Receive Date: 20140220
  Receipt Date: 20140424
  Transmission Date: 20141212
  Serious: Yes (Life-Threatening, Hospitalization)
  Sender: FDA-Public Use
  Company Number: JP-SA-2014SA018431

PATIENT
  Age: 86 Year
  Sex: Female
  Weight: 38.6 kg

DRUGS (14)
  1. CEFAMEZIN [Suspect]
     Indication: INFECTION PROPHYLAXIS
     Route: 041
     Dates: start: 20130625, end: 20130626
  2. PLAVIX [Suspect]
     Indication: CEREBROVASCULAR ACCIDENT PROPHYLAXIS
     Route: 048
     Dates: end: 20130627
  3. PLAVIX [Suspect]
     Indication: CEREBROVASCULAR ACCIDENT PROPHYLAXIS
     Route: 048
     Dates: start: 20130709
  4. REBAMIPIDE [Concomitant]
     Indication: GASTRITIS
     Route: 048
  5. OPALMON [Concomitant]
     Indication: LUMBAR SPINAL STENOSIS
     Route: 048
  6. BROTIZOLAM [Concomitant]
     Indication: INSOMNIA
     Route: 048
  7. OMEPRAZOLE [Concomitant]
     Indication: GASTROOESOPHAGEAL REFLUX DISEASE
     Route: 048
  8. METHYLCOBAL [Concomitant]
     Indication: NEUROPATHY PERIPHERAL
     Route: 048
  9. PROPOFOL [Concomitant]
     Indication: ANAESTHESIA
     Route: 042
     Dates: start: 20130625, end: 20130625
  10. FENTANYL [Concomitant]
     Indication: ANAESTHESIA
     Route: 042
     Dates: start: 20130625, end: 20130625
  11. PRIMPERAN [Concomitant]
     Indication: VOMITING
     Route: 042
     Dates: start: 20130625, end: 20130625
  12. PERDIPINE [Concomitant]
     Indication: BLOOD PRESSURE ABNORMAL
     Route: 042
     Dates: start: 20130625, end: 20130625
  13. ROPION [Concomitant]
     Indication: ANALGESIC THERAPY
     Route: 042
     Dates: start: 20130625, end: 20130625
  14. ROPION [Concomitant]
     Indication: ANALGESIC THERAPY
     Route: 042
     Dates: start: 20130626, end: 20130626

REACTIONS (7)
  - Wound haemorrhage [Unknown]
  - Thrombocytopenia [Recovered/Resolved]
  - Petechiae [Recovered/Resolved]
  - Disseminated intravascular coagulation [Recovering/Resolving]
  - Prothrombin time prolonged [Recovering/Resolving]
  - Fibrin D dimer increased [Recovering/Resolving]
  - Activated partial thromboplastin time prolonged [Recovering/Resolving]
